FAERS Safety Report 6170970-2 (Version None)
Quarter: 2009Q2

REPORT INFORMATION
  Report Type: 
  Country: None (occurrence: None)
  Receive Date: 20090427
  Receipt Date: 20090427
  Transmission Date: 20091009
  Serious: Yes (Other)
  Sender: FDA-Public Use
  Company Number: None

PATIENT
  Age: 70 Year
  Sex: Female
  Weight: 78.4723 kg

DRUGS (9)
  1. ENALAPRIL MALEATE [Suspect]
     Indication: HYPERTENSION
     Dates: end: 20090115
  2. AMLODIPINE [Concomitant]
  3. SIMVASTATIN [Concomitant]
  4. ASPIRIN [Concomitant]
  5. CALCIUM CARBONATE WITH VITAMIN D [Concomitant]
  6. DUCOSATE SODIUM [Concomitant]
  7. A AND D OINTMENT [Concomitant]
  8. FLUPHENAZINE [Concomitant]
  9. QUETIAPINE XR [Concomitant]

REACTIONS (1)
  - LIP SWELLING [None]
